FAERS Safety Report 7045707-5 (Version None)
Quarter: 2010Q4

REPORT INFORMATION
  Report Type: 
  Country: None (occurrence: None)
  Receive Date: 20101014
  Receipt Date: 20101013
  Transmission Date: 20110411
  Serious: Yes (Hospitalization, Other)
  Sender: FDA-Public Use
  Company Number: FI-BRISTOL-MYERS SQUIBB COMPANY-15330814

PATIENT
  Age: 19 Year
  Sex: Female

DRUGS (3)
  1. ABILIFY [Suspect]
     Indication: BIPOLAR DISORDER
     Route: 048
     Dates: start: 20091208, end: 20100112
  2. DEPRAKINE [Suspect]
     Indication: BIPOLAR DISORDER
     Dosage: TABS RECEIVED FOR A YEAR
     Route: 048
     Dates: end: 20100401
  3. SEROQUEL [Suspect]
     Indication: BIPOLAR DISORDER
     Dosage: FOR:SEROQUEL PROLONG TABLET  RECEIVED FOR SEVERAL YRS
     Route: 048
     Dates: end: 20100101

REACTIONS (1)
  - MANIA [None]
